FAERS Safety Report 5438445-3 (Version None)
Quarter: 2007Q3

REPORT INFORMATION
  Report Type: 
  Country: None (occurrence: None)
  Receive Date: 20070831
  Receipt Date: 20070821
  Transmission Date: 20080115
  Serious: Yes (Hospitalization, Other)
  Sender: FDA-Public Use
  Company Number: US-ELI_LILLY_AND_COMPANY-US200707003927

PATIENT
  Age: 79 Year
  Sex: Female
  Weight: 62.131 kg

DRUGS (14)
  1. FORTEO [Suspect]
     Indication: OSTEOPOROSIS
     Dosage: 20 UG, EACH EVENING
     Dates: start: 20070510, end: 20070707
  2. FORTEO [Suspect]
     Dosage: 20 UG, EACH MORNING
     Dates: start: 20070708, end: 20070710
  3. LASIX [Concomitant]
     Dosage: 20 MG, DAILY (1/D)
  4. SYNTHROID [Concomitant]
     Dosage: 0.125 UNK, DAILY (1/D)
  5. ASPIRIN [Concomitant]
     Dosage: 325 MG, DAILY (1/D)
  6. PLAVIX [Concomitant]
     Dosage: 75 MG, DAILY (1/D)
  7. CRESTOR [Concomitant]
     Dosage: 10 MG, DAILY (1/D)
  8. DIOVAN [Concomitant]
     Dosage: 40 MG, DAILY (1/D)
  9. COREG [Concomitant]
     Dosage: 3.125 UNK, 2/D
  10. CALCIUM [Concomitant]
     Dosage: 1000 UNK, EACH MORNING
  11. CALTRATE [Concomitant]
     Dosage: UNK, DAILY (1/D)
  12. MULTI-VITAMIN [Concomitant]
  13. CO-Q10 [Concomitant]
     Dosage: 100 MG, DAILY (1/D)
  14. LUTEIN [Concomitant]
     Dosage: 6 MG, DAILY (1/D)

REACTIONS (4)
  - CORONARY ARTERY DISEASE [None]
  - ISCHAEMIC CARDIOMYOPATHY [None]
  - MYOCARDIAL INFARCTION [None]
  - WEIGHT DECREASED [None]
